FAERS Safety Report 15033640 (Version 1)
Quarter: 2018Q2

REPORT INFORMATION
  Report Type: Spontaneous
  Country: US (occurrence: US)
  Receive Date: 20180619
  Receipt Date: 20180619
  Transmission Date: 20180711
  Serious: Yes (Hospitalization)
  Sender: FDA-Public Use
  Company Number: US-AMGEN-USASP2011027760

PATIENT
  Age: 62 Year
  Sex: Female

DRUGS (34)
  1. HEPARIN [Concomitant]
     Active Substance: HEPARIN SODIUM
  2. EPHEDRIN [Concomitant]
     Active Substance: EPHEDRINE HYDROCHLORIDE
  3. VALGANCICLOVIR. [Concomitant]
     Active Substance: VALGANCICLOVIR
  4. GLYCOPYRRONIUM BROMIDE [Concomitant]
     Active Substance: GLYCOPYRRONIUM
  5. PROPOFOL. [Concomitant]
     Active Substance: PROPOFOL
  6. INSULIN GLARGINE [Concomitant]
     Active Substance: INSULIN GLARGINE
  7. INSULIN [Concomitant]
     Active Substance: INSULIN NOS
  8. SEVELAMER HYDROCHLORIDE [Concomitant]
     Active Substance: SEVELAMER HYDROCHLORIDE
  9. ESOMEPRAZOLE [Concomitant]
     Active Substance: ESOMEPRAZOLE
  10. FISH OIL [Concomitant]
     Active Substance: FISH OIL
  11. NEUPOGEN [Suspect]
     Active Substance: FILGRASTIM
     Indication: LEUKOPENIA
     Dosage: 100 UNK, UNK
     Route: 058
     Dates: start: 20100319, end: 20100320
  12. GLIMEPIRIDE. [Concomitant]
     Active Substance: GLIMEPIRIDE
  13. NEURONTIN [Concomitant]
     Active Substance: GABAPENTIN
  14. DARVOCET-N 100 [Concomitant]
     Active Substance: ACETAMINOPHEN\PROPOXYPHENE NAPSYLATE
  15. SULFAMETHOXAZOLE AND TRIMETHOPRIM [Concomitant]
     Active Substance: SULFAMETHOXAZOLE\TRIMETHOPRIM
  16. DAPSONE. [Concomitant]
     Active Substance: DAPSONE
  17. METOPROLOL. [Concomitant]
     Active Substance: METOPROLOL
  18. PLACEBO [Suspect]
     Active Substance: UNSPECIFIED INGREDIENT
     Indication: PRODUCT USED FOR UNKNOWN INDICATION
     Dosage: UNK
     Dates: start: 20091103
  19. NORVASC [Concomitant]
     Active Substance: AMLODIPINE BESYLATE
  20. COLACE [Concomitant]
     Active Substance: DOCUSATE SODIUM
  21. BENICAR [Concomitant]
     Active Substance: OLMESARTAN MEDOXOMIL
  22. CELEBREX [Concomitant]
     Active Substance: CELECOXIB
  23. MYCOPHENOLATE MOFETIL. [Concomitant]
     Active Substance: MYCOPHENOLATE MOFETIL
  24. AMLODIPINE [Concomitant]
     Active Substance: AMLODIPINE BESYLATE
  25. PREDNISONE. [Concomitant]
     Active Substance: PREDNISONE
  26. SENSIPAR [Concomitant]
     Active Substance: CINACALCET HYDROCHLORIDE
  27. CEFAZOLIN [Concomitant]
     Active Substance: CEFAZOLIN
  28. CIPROFLOXACIN. [Concomitant]
     Active Substance: CIPROFLOXACIN
  29. PROMETHAZINE HCL [Concomitant]
     Active Substance: PROMETHAZINE HYDROCHLORIDE
  30. LIPITOR [Concomitant]
     Active Substance: ATORVASTATIN CALCIUM
  31. LIDOCAINE. [Concomitant]
     Active Substance: LIDOCAINE
  32. TACROLIMUS. [Concomitant]
     Active Substance: TACROLIMUS
  33. OMEPRAZOLE. [Concomitant]
     Active Substance: OMEPRAZOLE
  34. SYNTHROID [Concomitant]
     Active Substance: LEVOTHYROXINE SODIUM

REACTIONS (1)
  - Chest pain [Recovered/Resolved]

NARRATIVE: CASE EVENT DATE: 20100320
